FAERS Safety Report 21848383 (Version 2)
Quarter: 2023Q2

REPORT INFORMATION
  Report Type: Spontaneous
  Country: JP (occurrence: JP)
  Receive Date: 20230111
  Receipt Date: 20230405
  Transmission Date: 20230722
  Serious: Yes (Hospitalization, Other)
  Sender: FDA-Public Use
  Company Number: JP-CHEMOCENTRYX, INC.-2022JPCCXI0452

PATIENT

DRUGS (5)
  1. TAVNEOS [Suspect]
     Active Substance: AVACOPAN
     Indication: Microscopic polyangiitis
     Dosage: 60 MG (30 MG,2 IN 1 D)
     Route: 048
     Dates: start: 20220929, end: 20221019
  2. TAVNEOS [Suspect]
     Active Substance: AVACOPAN
     Dosage: 30 MG (30 MG,1 IN 1 D)
     Route: 048
     Dates: start: 20221019
  3. RITUXIMAB [Suspect]
     Active Substance: RITUXIMAB
     Indication: Microscopic polyangiitis
     Dosage: 500 MG, QD
     Route: 042
     Dates: start: 20220822, end: 20220914
  4. PREDNISOLONE [Concomitant]
     Active Substance: PREDNISOLONE
     Indication: Microscopic polyangiitis
     Dosage: 50 MG
     Route: 048
     Dates: start: 20220820
  5. PREDNISOLONE [Concomitant]
     Active Substance: PREDNISOLONE
     Dosage: 6.5 MG
     Route: 048
     Dates: start: 202301

REACTIONS (2)
  - Neutrophil count decreased [Recovered/Resolved]
  - White blood cell count decreased [Recovering/Resolving]

NARRATIVE: CASE EVENT DATE: 20221019
